FAERS Safety Report 8600698-8 (Version None)
Quarter: 2012Q3

REPORT INFORMATION
  Report Type: 
  Country: None (occurrence: None)
  Receive Date: 20120803
  Receipt Date: 20120731
  Transmission Date: 20120928
  Serious: Yes (Disabling, Other)
  Sender: FDA-Public Use
  Company Number: GER/UKI/12/0025257

PATIENT
  Age: 30 Year
  Weight: 73 kg

DRUGS (1)
  1. CIPROFLOXACIN [Suspect]
     Indication: EPIDIDYMITIS
     Dosage: 500 MG, 2 IN 1 D, ORAL
     Route: 048
     Dates: start: 20120320, end: 20120326

REACTIONS (14)
  - TREMOR [None]
  - PARAESTHESIA [None]
  - RESTLESSNESS [None]
  - DYSPNOEA [None]
  - NIGHTMARE [None]
  - INSOMNIA [None]
  - PALLOR [None]
  - DECREASED APPETITE [None]
  - BACK PAIN [None]
  - ANXIETY [None]
  - WEIGHT DECREASED [None]
  - MUSCULAR WEAKNESS [None]
  - FATIGUE [None]
  - TACHYCARDIA [None]
